FAERS Safety Report 11057687 (Version 2)
Quarter: 2015Q3

REPORT INFORMATION
  Report Type: Spontaneous
  Country: JP (occurrence: JP)
  Receive Date: 20150423
  Receipt Date: 20150701
  Transmission Date: 20151125
  Serious: Yes (Death)
  Sender: FDA-Public Use
  Company Number: JP-ROCHE-1538907

PATIENT
  Age: 88 Year
  Sex: Female
  Weight: 40 kg

DRUGS (3)
  1. EDARAVONE [Concomitant]
     Active Substance: EDARAVONE
     Indication: EMBOLIC STROKE
     Route: 065
     Dates: start: 2013
  2. ALTEPLASE [Suspect]
     Active Substance: ALTEPLASE
     Indication: EMBOLIC STROKE
     Route: 042
     Dates: start: 20130606
  3. DILTIAZEM HYDROCHLORIDE. [Concomitant]
     Active Substance: DILTIAZEM HYDROCHLORIDE
     Indication: HYPERTENSION
     Route: 048

REACTIONS (1)
  - Myocardial rupture [Fatal]

NARRATIVE: CASE EVENT DATE: 20130606
